FAERS Safety Report 9440407 (Version 2)
Quarter: 2013Q3

REPORT INFORMATION
  Report Type: Spontaneous
  Country: JP (occurrence: JP)
  Receive Date: 20130805
  Receipt Date: 20130814
  Transmission Date: 20140515
  Serious: Yes (Other)
  Sender: FDA-Public Use
  Company Number: JP-ASTRAZENECA-2013SE60365

PATIENT
  Age: 68 Year
  Sex: Female

DRUGS (7)
  1. SEROQUEL [Suspect]
     Route: 048
  2. SEROQUEL [Suspect]
     Dosage: 250-300MG, DAILY
     Route: 048
     Dates: start: 2013
  3. SEROQUEL [Suspect]
     Route: 048
  4. ANTIPSYCHOTICS [Concomitant]
     Route: 048
  5. BENIDIPINE [Concomitant]
     Route: 048
  6. CLONAZEPAM [Concomitant]
     Route: 048
  7. ROHYPNOL [Concomitant]

REACTIONS (1)
  - Hepatic function abnormal [Recovering/Resolving]
